FAERS Safety Report 10272493 (Version 3)
Quarter: 2014Q3

REPORT INFORMATION
  Report Type: Spontaneous
  Country: TR (occurrence: TR)
  Receive Date: 20140702
  Receipt Date: 20140728
  Transmission Date: 20150326
  Serious: Yes (Death, Life-Threatening)
  Sender: FDA-Public Use
  Company Number: TR-JNJFOC-20140617490

PATIENT
  Age: 72 Year
  Sex: Male

DRUGS (2)
  1. METHYLPREDNISOLONE [Concomitant]
     Active Substance: METHYLPREDNISOLONE
     Route: 065
     Dates: start: 20140505, end: 20140528
  2. ZYTIGA [Suspect]
     Active Substance: ABIRATERONE ACETATE
     Indication: PROSTATE CANCER
     Route: 048
     Dates: start: 20140505, end: 20140528

REACTIONS (3)
  - Bradycardia [Unknown]
  - General physical health deterioration [Unknown]
  - Cardiac failure [Fatal]

NARRATIVE: CASE EVENT DATE: 2014
